FAERS Safety Report 13718854 (Version 3)
Quarter: 2017Q3

REPORT INFORMATION
  Report Type: Spontaneous
  Country: AT (occurrence: AT)
  Receive Date: 20170705
  Receipt Date: 20170719
  Transmission Date: 20171127
  Serious: Yes (Hospitalization, Other)
  Sender: FDA-Public Use
  Company Number: AT-BAYER-2017-123151

PATIENT
  Age: 28 Year
  Sex: Female

DRUGS (14)
  1. DOXICYCLIN [Suspect]
     Active Substance: DOXYCYCLINE
     Dosage: UNK
  2. CEFTRIAXONE. [Suspect]
     Active Substance: CEFTRIAXONE
     Dosage: UNK
  3. PREDNISOLONE. [Suspect]
     Active Substance: PREDNISOLONE
     Indication: STILL^S DISEASE
     Dosage: 40 MG, UNK
  4. DEXAMETHASONE. [Suspect]
     Active Substance: DEXAMETHASONE
     Dosage: UNK
  5. GANCICLOVIR. [Suspect]
     Active Substance: GANCICLOVIR
     Dosage: UNK
  6. CIPROFLOXACIN. [Suspect]
     Active Substance: CIPROFLOXACIN
     Dosage: UNK
  7. MOXIFLOXACIN ORAL [Suspect]
     Active Substance: MOXIFLOXACIN
     Dosage: UNK
  8. PREDNISOLONE. [Suspect]
     Active Substance: PREDNISOLONE
     Indication: STILL^S DISEASE
     Dosage: 100 MG, UNK
  9. DOXICYCLIN [Suspect]
     Active Substance: DOXYCYCLINE
     Dosage: UNK
  10. LINEZOLID. [Suspect]
     Active Substance: LINEZOLID
     Dosage: UNK
  11. MEROPENEM. [Suspect]
     Active Substance: MEROPENEM
     Dosage: UNK
  12. TRIMETOPRIM + SULFAMETOXAZOL [Suspect]
     Active Substance: SULFAMETHOXAZOLE\TRIMETHOPRIM
     Dosage: UNK
  13. PENICILIN G [Suspect]
     Active Substance: PENICILLIN G
     Dosage: UNK
  14. FLUCLOXACILLIN [Suspect]
     Active Substance: FLUCLOXACILLIN
     Dosage: UNK

REACTIONS (1)
  - Enterocolitis [Recovered/Resolved]
